FAERS Safety Report 6681053-7 (Version None)
Quarter: 2010Q2

REPORT INFORMATION
  Report Type: 
  Country: None (occurrence: None)
  Receive Date: 20100414
  Receipt Date: 20100409
  Transmission Date: 20101027
  Serious: Yes (Hospitalization)
  Sender: FDA-Public Use
  Company Number: DE-ROCHE-694394

PATIENT
  Sex: Female
  Weight: 70 kg

DRUGS (6)
  1. BEVACIZUMAB [Suspect]
     Indication: BREAST CANCER
     Dosage: DOSE AS PER PROTOCOL, LAST DOSE PRIOR TO SAE: 03 MARCH 2010
     Route: 042
     Dates: start: 20100208
  2. CAPECITABINE [Suspect]
     Indication: BREAST CANCER
     Dosage: DAYS 1-14, DOSE AS PER PROTOCOL, LAST DOSE PRIOR TO SAE: 16 MARCH 2010.
     Route: 048
     Dates: start: 20100208
  3. VINORELBINE [Suspect]
     Indication: BREAST CANCER
     Dosage: DAYS 1+14, DOSE AS PER PROTOCOL, LAST DOSE PRIOR TO SAE: 10 MARCH 2010.
     Route: 042
  4. ENALAPRIL MALEATE [Concomitant]
  5. SPIRONOLACTONE [Concomitant]
  6. FUROSEMID [Concomitant]

REACTIONS (1)
  - VERTIGO [None]
